FAERS Safety Report 25968167 (Version 1)
Quarter: 2025Q4

REPORT INFORMATION
  Report Type: Spontaneous
  Country: US (occurrence: US)
  Receive Date: 20251028
  Receipt Date: 20251028
  Transmission Date: 20260118
  Serious: No
  Sender: NOVARTIS
  Company Number: US-002147023-NVSC2025US162323

PATIENT
  Age: 43 Year
  Sex: Female
  Weight: 160 kg

DRUGS (1)
  1. KESIMPTA [Suspect]
     Active Substance: OFATUMUMAB
     Indication: Multiple sclerosis
     Dosage: 4 MG, QMO (AMPOULE)
     Route: 058
     Dates: start: 20250918, end: 20251017

REACTIONS (3)
  - Pyrexia [Unknown]
  - Pain [Unknown]
  - Discomfort [Unknown]

NARRATIVE: CASE EVENT DATE: 20251016
